FAERS Safety Report 4483399-X (Version None)
Quarter: 2004Q4

REPORT INFORMATION
  Report Type: 
  Country: None (occurrence: None)
  Receive Date: 20041020
  Receipt Date: 20041006
  Transmission Date: 20050328
  Serious: Yes (Hospitalization)
  Sender: FDA-Public Use
  Company Number: 239873

PATIENT
  Age: 72 Year
  Sex: Female
  Weight: 54 kg

DRUGS (3)
  1. INNOLET 30R CHU(INSULIN HUMAN) SUSPENSION FOR INJECTION, 100IU/ML [Suspect]
     Indication: DIABETES MELLITUS
     Dosage: 28 U, SUBCUTANEOUS
     Route: 058
  2. INNOLET N CHU (INSULIN HUMAN) SUSPENSION FOR INJECTION, 100IU/ML [Suspect]
     Indication: DIABETES MELLITUS
     Dosage: 14 U, SUBCUTANEOUS
     Route: 058
  3. ACTOS [Concomitant]

REACTIONS (3)
  - DIABETIC KETOACIDOSIS [None]
  - OEDEMA [None]
  - URINARY TRACT INFECTION [None]
